FAERS Safety Report 5057935-9 (Version None)
Quarter: 2006Q3

REPORT INFORMATION
  Report Type: 
  Country: None (occurrence: None)
  Receive Date: 20060721
  Receipt Date: 20060407
  Transmission Date: 20061208
  Serious: No
  Sender: FDA-Public Use
  Company Number: US-GLAXOSMITHKLINE-A0600947A

PATIENT
  Age: 63 Year
  Sex: Female

DRUGS (6)
  1. AVANDIA [Suspect]
     Dosage: 2MG TWICE PER DAY
     Route: 048
     Dates: start: 20050801, end: 20051201
  2. METFORMIN [Suspect]
     Dosage: 1000MG TWICE PER DAY
     Route: 048
     Dates: start: 20050801, end: 20051201
  3. UNSPECIFIED MEDICATION [Concomitant]
     Indication: BLOOD CHOLESTEROL INCREASED
  4. LISINOPRIL [Concomitant]
  5. GLIPIZIDE [Concomitant]
  6. AVANDAMET [Concomitant]
     Route: 048

REACTIONS (2)
  - BLOOD GLUCOSE INCREASED [None]
  - THERAPEUTIC RESPONSE DECREASED [None]
